FAERS Safety Report 10176102 (Version 1)
Quarter: 2014Q2

REPORT INFORMATION
  Report Type: Spontaneous
  Country: US (occurrence: US)
  Receive Date: 20140516
  Receipt Date: 20140516
  Transmission Date: 20141212
  Serious: No
  Sender: FDA-Public Use
  Company Number: US-PFIZER INC-2014131931

PATIENT
  Age: 56 Year
  Sex: Female
  Weight: 86.17 kg

DRUGS (1)
  1. DILANTIN [Suspect]
     Dosage: 200 MG, 2X/DAY

REACTIONS (1)
  - Drug ineffective [Unknown]
